FAERS Safety Report 19921587 (Version 2)
Quarter: 2022Q4

REPORT INFORMATION
  Report Type: Spontaneous
  Country: US (occurrence: US)
  Receive Date: 20211006
  Receipt Date: 20221004
  Transmission Date: 20230113
  Serious: Yes (Other)
  Sender: FDA-Public Use
  Company Number: US-SA-SAC20211001000488

PATIENT
  Age: 58 Year
  Sex: Male

DRUGS (1)
  1. ZANTAC [Suspect]
     Active Substance: RANITIDINE HYDROCHLORIDE
     Indication: Dyspepsia
     Dosage: QD
     Dates: start: 198603, end: 201805

REACTIONS (3)
  - Oesophageal carcinoma [Unknown]
  - Laryngeal cancer stage IV [Recovering/Resolving]
  - Throat cancer [Recovering/Resolving]

NARRATIVE: CASE EVENT DATE: 20081101
